FAERS Safety Report 15507418 (Version 1)
Quarter: 2018Q4

REPORT INFORMATION
  Report Type: Spontaneous
  Country: FR (occurrence: FR)
  Receive Date: 20181016
  Receipt Date: 20181016
  Transmission Date: 20190205
  Serious: Yes (Disabling)
  Sender: FDA-Public Use
  Company Number: FR-PROVELL PHARMACEUTICALS-2056175

PATIENT
  Age: 30 Year
  Sex: Female
  Weight: 52 kg

DRUGS (1)
  1. EUTHYROX [Suspect]
     Active Substance: LEVOTHYROXINE SODIUM
     Indication: HYPOTHYROIDISM
     Route: 048
     Dates: end: 20180604

REACTIONS (6)
  - Headache [Unknown]
  - Diffuse alopecia [Unknown]
  - Insomnia [Unknown]
  - Dyspnoea [Unknown]
  - Myalgia [Unknown]
  - Vertigo [Unknown]

NARRATIVE: CASE EVENT DATE: 20170501
